FAERS Safety Report 10037237 (Version 1)
Quarter: 2014Q1

REPORT INFORMATION
  Report Type: Report from Study
  Country: CA (occurrence: CA)
  Receive Date: 20140326
  Receipt Date: 20140326
  Transmission Date: 20141002
  Serious: Yes (Other)
  Sender: FDA-Public Use
  Company Number: CA-UCBSA-115074

PATIENT
  Sex: Male
  Weight: 2.76 kg

DRUGS (7)
  1. CIMZIA [Suspect]
     Indication: ANKYLOSING SPONDYLITIS
     Route: 064
     Dates: start: 201304, end: 20130515
  2. INDOMETHACIN [Concomitant]
     Indication: PAIN
     Route: 064
     Dates: start: 201301, end: 2013
  3. SYNTHROID [Concomitant]
     Indication: HYPOTHYROIDISM
     Route: 064
  4. EFFEXOR [Concomitant]
     Indication: ANXIETY
     Route: 064
  5. SEROQUEL [Concomitant]
     Indication: ANXIETY
     Route: 064
     Dates: end: 2013
  6. NEXIUM [Concomitant]
     Route: 064
     Dates: end: 2013
  7. IBUPROFENE [Concomitant]
     Indication: PAIN
     Route: 064

REACTIONS (2)
  - Premature baby [Recovered/Resolved]
  - Foetal exposure during pregnancy [Recovered/Resolved]
